FAERS Safety Report 7906412-3 (Version None)
Quarter: 2011Q4

REPORT INFORMATION
  Report Type: 
  Country: None (occurrence: None)
  Receive Date: 20111110
  Receipt Date: 20111107
  Transmission Date: 20120403
  Serious: Yes (Life-Threatening, Hospitalization, Other)
  Sender: FDA-Public Use
  Company Number: FR-PFIZER INC-2011271356

PATIENT
  Age: 22 Year
  Sex: Female

DRUGS (1)
  1. LEVONORGESTREL AND ETHINYL ESTRADIOL [Suspect]
     Indication: CONTRACEPTION
     Dosage: UNK
     Route: 048
     Dates: start: 20110401, end: 20110904

REACTIONS (4)
  - PULMONARY INFARCTION [None]
  - ABDOMINAL NEOPLASM [None]
  - PULMONARY EMBOLISM [None]
  - VENA CAVA THROMBOSIS [None]
